FAERS Safety Report 20124230 (Version 1)
Quarter: 2021Q4

REPORT INFORMATION
  Report Type: Spontaneous
  Country: US (occurrence: US)
  Receive Date: 20211129
  Receipt Date: 20211129
  Transmission Date: 20220303
  Serious: Yes (Other)
  Sender: FDA-Public Use
  Company Number: US-GLAXOSMITHKLINE-US2021GSK242741

PATIENT
  Sex: Male

DRUGS (10)
  1. ZANTAC [Suspect]
     Active Substance: RANITIDINE HYDROCHLORIDE
     Indication: Gastrooesophageal reflux disease
     Dosage: 75 MG, FROM 2015 TO 2019 USED INFREQUENTLY.
     Route: 065
     Dates: start: 199701, end: 201901
  2. ZANTAC [Suspect]
     Active Substance: RANITIDINE HYDROCHLORIDE
     Indication: Dyspepsia
     Dosage: 150 MG, FROM 2015 TO 2019 USED INFREQUENTLY.
     Route: 065
     Dates: start: 199701, end: 201901
  3. ZANTAC [Suspect]
     Active Substance: RANITIDINE HYDROCHLORIDE
     Indication: Gastrooesophageal reflux disease
     Dosage: 75 MG, FROM 2015 TO 2019 USED INFREQUENTLY.
     Route: 065
     Dates: start: 199701, end: 201901
  4. ZANTAC [Suspect]
     Active Substance: RANITIDINE HYDROCHLORIDE
     Indication: Dyspepsia
     Dosage: 150 MG, FROM 2015 TO 2019 USED INFREQUENTLY.
     Route: 065
     Dates: start: 199701, end: 201901
  5. RANITIDINE [Suspect]
     Active Substance: RANITIDINE
     Indication: Gastrooesophageal reflux disease
     Dosage: 75 MG, FROM 2015 TO 2019 USED INFREQUENTLY.
     Route: 065
     Dates: start: 199701, end: 201901
  6. RANITIDINE [Suspect]
     Active Substance: RANITIDINE
     Indication: Dyspepsia
     Dosage: 150 MG, FROM 2015 TO 2019 USED INFREQUENTLY.
     Route: 065
     Dates: start: 199701, end: 201901
  7. RANITIDINE [Suspect]
     Active Substance: RANITIDINE
     Dosage: MAXIMUM OF 1 PILL EVERY 4-6 HOURS WHEN NEEDED TILL YEAR 2015, FROM 2015 TO 2019 USED INFREQUENTLY.
     Route: 065
     Dates: start: 199701, end: 201901
  8. RANITIDINE [Suspect]
     Active Substance: RANITIDINE
     Indication: Gastrooesophageal reflux disease
     Dosage: 75 MG, FROM 2015 TO 2019 USED INFREQUENTLY.
     Route: 065
     Dates: start: 199701, end: 201901
  9. RANITIDINE [Suspect]
     Active Substance: RANITIDINE
     Indication: Dyspepsia
     Dosage: 150 MG, FROM 2015 TO 2019 USED INFREQUENTLY.
     Route: 065
     Dates: start: 199701, end: 201901
  10. RANITIDINE [Suspect]
     Active Substance: RANITIDINE
     Dosage: MAXIMUM OF 1 PILL EVERY 4-6 HOURS WHEN NEEDED TILL YEAR 2015, FROM 2015 TO 2019 USED INFREQUENTLY.
     Route: 065
     Dates: start: 199701, end: 201901

REACTIONS (1)
  - Renal cancer [Unknown]
